FAERS Safety Report 6237979-1 (Version None)
Quarter: 2009Q2

REPORT INFORMATION
  Report Type: 
  Country: None (occurrence: None)
  Receive Date: 20090617
  Receipt Date: 20090617
  Transmission Date: 20091009
  Serious: Yes (Hospitalization)
  Sender: FDA-Public Use
  Company Number: None

PATIENT
  Sex: Female
  Weight: 50.45 kg

DRUGS (2)
  1. CARBOPLATIN [Suspect]
     Dosage: 582 MG
  2. TAXOL [Suspect]
     Dosage: 259 MG

REACTIONS (6)
  - ABDOMINAL ADHESIONS [None]
  - NAUSEA [None]
  - NEUTROPENIA [None]
  - REGURGITATION [None]
  - SMALL INTESTINAL OBSTRUCTION [None]
  - VOMITING [None]
